FAERS Safety Report 11309587 (Version 1)
Quarter: 2015Q3

REPORT INFORMATION
  Report Type: Report from Study
  Country: ES (occurrence: ES)
  Receive Date: 20150724
  Receipt Date: 20150724
  Transmission Date: 20151125
  Serious: Yes (Other)
  Sender: FDA-Public Use
  Company Number: ES-VIIV HEALTHCARE LIMITED-ES2015GSK101925

PATIENT
  Age: 57 Year
  Sex: Male

DRUGS (4)
  1. LAMIVUDINE AND ZIDOVUDINE [Suspect]
     Active Substance: LAMIVUDINE\ZIDOVUDINE
     Indication: HIV INFECTION
     Dosage: UNK UNK, BID
     Dates: start: 200605
  2. ENALAPRIL [Concomitant]
     Active Substance: ENALAPRIL
     Dosage: UNK
  3. ATAZANAVIR [Concomitant]
     Active Substance: ATAZANAVIR
     Dosage: 300/100MG
     Dates: start: 200605
  4. METFORMINE [Concomitant]
     Active Substance: METFORMIN HYDROCHLORIDE
     Dosage: UNK

REACTIONS (4)
  - Dyslipidaemia [Unknown]
  - Virologic failure [Recovered/Resolved]
  - Renal impairment [Recovering/Resolving]
  - Diarrhoea [Unknown]
